FAERS Safety Report 4487573-8 (Version None)
Quarter: 2004Q4

REPORT INFORMATION
  Report Type: 
  Country: None (occurrence: None)
  Receive Date: 20041027
  Receipt Date: 20041027
  Transmission Date: 20050328
  Serious: Yes (Other)
  Sender: FDA-Public Use
  Company Number: None

PATIENT
  Sex: Female
  Weight: 60.782 kg

DRUGS (1)
  1. TUBERCULIN, PPD 5 TU/ 0.1 ML PARKEDALE PHARMACEUTICALS [Suspect]
     Dosage: 0.1 ML SUBDERMAL
     Route: 059
     Dates: start: 20041022, end: 20041025

REACTIONS (4)
  - ERYTHEMA [None]
  - LOCAL REACTION [None]
  - PAIN IN EXTREMITY [None]
  - SWELLING [None]
